FAERS Safety Report 21205071 (Version 1)
Quarter: 2022Q3

REPORT INFORMATION
  Report Type: Spontaneous
  Country: US (occurrence: US)
  Receive Date: 20220812
  Receipt Date: 20220812
  Transmission Date: 20221027
  Serious: Yes (Other)
  Sender: FDA-Public Use
  Company Number: US-SA-SAC20220809001897

PATIENT
  Age: 72 Year
  Sex: Male

DRUGS (1)
  1. ZANTAC [Suspect]
     Active Substance: RANITIDINE HYDROCHLORIDE
     Indication: Gastrooesophageal reflux disease
     Dosage: UNKNOWN AT THIS TIME, FREQUENCY: OTHER
     Dates: start: 201401, end: 201901

REACTIONS (3)
  - Bladder cancer [Unknown]
  - Pancreatic carcinoma [Unknown]
  - Gastric cancer [Unknown]

NARRATIVE: CASE EVENT DATE: 20190301
